FAERS Safety Report 16581535 (Version 1)
Quarter: 2019Q3

REPORT INFORMATION
  Report Type: Spontaneous
  Country: US (occurrence: US)
  Receive Date: 20190716
  Receipt Date: 20190716
  Transmission Date: 20191004
  Serious: No
  Sender: FDA-Public Use
  Company Number: US-CHILTERN-US-2019-000553

PATIENT
  Age: 74 Year
  Sex: Female

DRUGS (3)
  1. RHOPRESSA [Suspect]
     Active Substance: NETARSUDIL MESYLATE
     Indication: GLAUCOMA
     Dosage: 1 GTT IN LEFT EYE NIGHTLY
     Route: 047
     Dates: start: 20190409, end: 20190412
  2. RHOPRESSA [Suspect]
     Active Substance: NETARSUDIL MESYLATE
     Dosage: 1 GTT IN LEFT EYE NIGHTLY
     Route: 047
     Dates: start: 20190415, end: 20190418
  3. COMBIGAN [Concomitant]
     Active Substance: BRIMONIDINE TARTRATE\TIMOLOL MALEATE
     Indication: GLAUCOMA
     Dosage: 1 GTT, BID
     Route: 047

REACTIONS (8)
  - Conjunctival hyperaemia [Not Recovered/Not Resolved]
  - Throat irritation [Not Recovered/Not Resolved]
  - Influenza like illness [Not Recovered/Not Resolved]
  - Decreased appetite [Not Recovered/Not Resolved]
  - Eye irritation [Not Recovered/Not Resolved]
  - Nasal discomfort [Not Recovered/Not Resolved]
  - Vision blurred [Not Recovered/Not Resolved]
  - Insomnia [Not Recovered/Not Resolved]

NARRATIVE: CASE EVENT DATE: 20190412
